FAERS Safety Report 10359577 (Version 1)
Quarter: 2014Q3

REPORT INFORMATION
  Report Type: Spontaneous
  Country: US (occurrence: US)
  Receive Date: 20140804
  Receipt Date: 20140804
  Transmission Date: 20150326
  Serious: No
  Sender: FDA-Public Use
  Company Number: US-BAYER-2014-115423

PATIENT
  Sex: Male

DRUGS (2)
  1. ALEVE [Suspect]
     Active Substance: NAPROXEN SODIUM
     Dosage: 6 DF WITHIN 18 HOURS
     Route: 048
     Dates: start: 20140729
  2. ALEVE [Suspect]
     Active Substance: NAPROXEN SODIUM
     Dosage: UNK, PRN
     Route: 048

REACTIONS (2)
  - Extra dose administered [None]
  - Nervousness [Unknown]

NARRATIVE: CASE EVENT DATE: 20140729
